FAERS Safety Report 16701199 (Version 1)
Quarter: 2019Q3

REPORT INFORMATION
  Report Type: Spontaneous
  Country: US (occurrence: US)
  Receive Date: 20190814
  Receipt Date: 20190814
  Transmission Date: 20191004
  Serious: Yes (Other)
  Sender: FDA-Public Use
  Company Number: US-AUROBINDO-AUR-APL-2018-064093

PATIENT

DRUGS (2)
  1. PROCHLORPERAZINE. [Suspect]
     Active Substance: PROCHLORPERAZINE
     Indication: CHRONIC LYMPHOCYTIC LEUKAEMIA
     Dosage: UNK
     Route: 065
  2. PAROXETINE. [Suspect]
     Active Substance: PAROXETINE
     Indication: CHRONIC LYMPHOCYTIC LEUKAEMIA
     Dosage: UNK,FOR OVER 15 YEARS
     Route: 065

REACTIONS (9)
  - Tongue ulceration [Unknown]
  - Tardive dyskinesia [Unknown]
  - Mastication disorder [Unknown]
  - Peripheral vascular disorder [Unknown]
  - Tremor [Unknown]
  - Fall [Unknown]
  - Condition aggravated [Unknown]
  - Gait disturbance [Unknown]
  - Athetosis [Unknown]
